FAERS Safety Report 10521307 (Version 1)
Quarter: 2014Q4

REPORT INFORMATION
  Report Type: Report from Study
  Country: US (occurrence: US)
  Receive Date: 20141016
  Receipt Date: 20141016
  Transmission Date: 20150528
  Serious: Yes (Other)
  Sender: FDA-Public Use
  Company Number: US-JNJFOC-20141007679

PATIENT
  Age: 30 Year
  Sex: Male

DRUGS (1)
  1. XARELTO [Suspect]
     Active Substance: RIVAROXABAN
     Indication: PRODUCT USED FOR UNKNOWN INDICATION
     Route: 048

REACTIONS (5)
  - Cardiomyopathy [Unknown]
  - Hypertension [Unknown]
  - Tachycardia [Unknown]
  - Sleep apnoea syndrome [Unknown]
  - Weight decreased [Unknown]
